FAERS Safety Report 16860117 (Version 1)
Quarter: 2019Q4

REPORT INFORMATION
  Report Type: Spontaneous
  Country: US (occurrence: US)
  Receive Date: 20190927
  Receipt Date: 20190927
  Transmission Date: 20200122
  Serious: Yes (Other)
  Sender: FDA-Public Use
  Company Number: None

PATIENT
  Age: 30 Year
  Sex: Female
  Weight: 91.8 kg

DRUGS (2)
  1. WAL ZAN 150 [Suspect]
     Active Substance: RANITIDINE HYDROCHLORIDE
     Indication: DYSPEPSIA
     Dosage: ?          QUANTITY:24 TABLET(S);?
     Route: 048
     Dates: start: 20190830, end: 20190927
  2. GLUCOSE METER [Concomitant]

REACTIONS (2)
  - Maternal exposure during pregnancy [None]
  - Dyspepsia [None]

NARRATIVE: CASE EVENT DATE: 20190923
